FAERS Safety Report 25107804 (Version 1)
Quarter: 2025Q1

REPORT INFORMATION
  Report Type: Spontaneous
  Country: US (occurrence: US)
  Receive Date: 20250322
  Receipt Date: 20250322
  Transmission Date: 20250409
  Serious: No
  Sender: ROCHE
  Company Number: US-ROCHE-10000232806

PATIENT
  Sex: Male

DRUGS (9)
  1. TARCEVA [Suspect]
     Active Substance: ERLOTINIB HYDROCHLORIDE
     Indication: Lung neoplasm malignant
     Route: 065
  2. CLINDAMYCIN [Concomitant]
     Active Substance: CLINDAMYCIN
     Route: 048
  3. GEMTESA TAB 75 MG [Concomitant]
  4. LEVOTHYROXIN TAB 50 MCG [Concomitant]
  5. TAMSULOSIN H CAP 0.4 MG [Concomitant]
  6. VALTREX TAB 500 MG [Concomitant]
  7. VITAMIN B 12 TAB 500 MCG [Concomitant]
  8. VITAMIN C TAB 1000 MG [Concomitant]
  9. TAGRISSO TAB 80 MG [Concomitant]
     Route: 048

REACTIONS (1)
  - Rash [Recovered/Resolved]
